FAERS Safety Report 24267575 (Version 1)
Quarter: 2024Q3

REPORT INFORMATION
  Report Type: Spontaneous
  Country: FR (occurrence: FR)
  Receive Date: 20240830
  Receipt Date: 20240830
  Transmission Date: 20241017
  Serious: Yes (Hospitalization, Other)
  Sender: AMICUS THERAPEUTICS
  Company Number: FR-AMICUS THERAPEUTICS, INC.-AMI_3339

PATIENT
  Age: 47 Year
  Sex: Male

DRUGS (1)
  1. GALAFOLD [Suspect]
     Active Substance: MIGALASTAT HYDROCHLORIDE
     Indication: Fabry^s disease
     Dosage: 123 MILLIGRAM, QOD
     Route: 048
     Dates: end: 202408

REACTIONS (1)
  - Infarction [Recovered/Resolved]

NARRATIVE: CASE EVENT DATE: 20240814
